FAERS Safety Report 16246361 (Version 1)
Quarter: 2019Q2

REPORT INFORMATION
  Report Type: Report from Study
  Country: None (occurrence: US)
  Receive Date: 20190426
  Receipt Date: 20190426
  Transmission Date: 20190711
  Serious: Yes (Other)
  Sender: FDA-Public Use
  Company Number: US-ABBVIE-19K-163-2753434-00

PATIENT
  Sex: Female

DRUGS (1)
  1. HUMIRA [Suspect]
     Active Substance: ADALIMUMAB
     Indication: COLITIS ULCERATIVE
     Route: 058

REACTIONS (5)
  - Medical device site pain [Recovering/Resolving]
  - Urethrectomy [Recovering/Resolving]
  - Calculus bladder [Recovering/Resolving]
  - Device damage [Recovering/Resolving]
  - Medical device site infection [Recovering/Resolving]
